FAERS Safety Report 21682335 (Version 1)
Quarter: 2022Q4

REPORT INFORMATION
  Report Type: Spontaneous
  Country: BR (occurrence: None)
  Receive Date: 20221205
  Receipt Date: 20221205
  Transmission Date: 20230113
  Serious: Yes (Other)
  Sender: FDA-Public Use
  Company Number: BR-ROCHE-3226780

PATIENT
  Age: 65 Year
  Sex: Female
  Weight: 65.8 kg

DRUGS (12)
  1. TRASTUZUMAB [Suspect]
     Active Substance: TRASTUZUMAB
     Indication: Breast cancer
     Dosage: ADMINISTER 268.89712 ML INTRAVENOUSLY INTERMITTENTLY FOR 30 MINUTES
     Route: 041
     Dates: start: 20221101
  2. PERTUZUMAB [Suspect]
     Active Substance: PERTUZUMAB
     Indication: Breast cancer
     Dosage: ADMINISTER 263.986 ML INTRAVENOUSLY INTERMITTENTLY FOR 30 MINUTES
     Route: 042
     Dates: start: 20221101
  3. ATENOLOL [Concomitant]
     Active Substance: ATENOLOL
  4. ENALAPRIL [Concomitant]
     Active Substance: ENALAPRIL
  5. HYDROCHLOROTHIAZIDE [Concomitant]
     Active Substance: HYDROCHLOROTHIAZIDE
  6. SIMVASTATIN [Concomitant]
     Active Substance: SIMVASTATIN
  7. RISEDRONATE SODIUM [Concomitant]
     Active Substance: RISEDRONATE SODIUM
  8. ACETAMINOPHEN [Concomitant]
     Active Substance: ACETAMINOPHEN
  9. SALINE [Concomitant]
     Active Substance: SODIUM CHLORIDE
  10. DIPHENHYDRAMINE [Concomitant]
     Active Substance: DIPHENHYDRAMINE
  11. GRANISETRON [Concomitant]
     Active Substance: GRANISETRON
  12. DEXAMETHASONE [Concomitant]
     Active Substance: DEXAMETHASONE

REACTIONS (5)
  - Back pain [Recovered/Resolved]
  - Dyspnoea [Recovered/Resolved]
  - Erythema [Recovered/Resolved]
  - Nausea [Recovered/Resolved]
  - Hypoxia [Recovered/Resolved]

NARRATIVE: CASE EVENT DATE: 20221122
